FAERS Safety Report 10178064 (Version 1)
Quarter: 2014Q2

REPORT INFORMATION
  Report Type: Spontaneous
  Country: US (occurrence: US)
  Receive Date: 20140518
  Receipt Date: 20140518
  Transmission Date: 20141212
  Serious: Yes (Hospitalization, Other)
  Sender: FDA-Public Use
  Company Number: US-AMGEN INC.-USASP2014035512

PATIENT
  Age: 55 Year
  Sex: Female

DRUGS (1)
  1. ENBREL [Suspect]
     Indication: PSORIASIS
     Dosage: 25 MG, UNK
     Route: 065
     Dates: start: 20041001

REACTIONS (4)
  - Back injury [Recovered/Resolved]
  - Skeletal injury [Recovered/Resolved]
  - Fall [Recovered/Resolved]
  - Cerebrovascular accident [Not Recovered/Not Resolved]
